FAERS Safety Report 4882373-9 (Version None)
Quarter: 2005Q4

REPORT INFORMATION
  Report Type: 
  Country: None (occurrence: None)
  Receive Date: 20051201
  Receipt Date: 20050725
  Transmission Date: 20060501
  Serious: No
  Sender: FDA-Public Use
  Company Number: 2005PV000603

PATIENT
  Age: 64 Year
  Sex: Male
  Weight: 114.3065 kg

DRUGS (9)
  1. BYETTA [Suspect]
     Indication: DIABETES MELLITUS NON-INSULIN-DEPENDENT
     Dosage: 10 MCG; 5 MCG : BID ;SC
     Route: 058
     Dates: start: 20050621, end: 20050721
  2. BYETTA [Suspect]
     Indication: DIABETES MELLITUS NON-INSULIN-DEPENDENT
     Dosage: 10 MCG; 5 MCG : BID ;SC
     Route: 058
     Dates: start: 20050722
  3. LANTUS [Concomitant]
  4. METOPROLOL [Concomitant]
  5. ECOTRIN [Concomitant]
  6. LIPITOR [Concomitant]
  7. CARDIZEM [Concomitant]
  8. LEVOXYL [Concomitant]
  9. FUROSEMIDE [Concomitant]

REACTIONS (4)
  - DECREASED APPETITE [None]
  - EARLY SATIETY [None]
  - FEELING ABNORMAL [None]
  - WEIGHT DECREASED [None]
